FAERS Safety Report 16658812 (Version 4)
Quarter: 2019Q4

REPORT INFORMATION
  Report Type: Spontaneous
  Country: DE (occurrence: DE)
  Receive Date: 20190801
  Receipt Date: 20191220
  Transmission Date: 20200122
  Serious: Yes (Hospitalization)
  Sender: FDA-Public Use
  Company Number: PHHY2019DE173253

PATIENT
  Age: 58 Year
  Sex: Male

DRUGS (2)
  1. COSENTYX [Suspect]
     Active Substance: SECUKINUMAB
     Indication: PSORIASIS
     Dosage: 150 MG, UNK
     Route: 065
     Dates: start: 20190322, end: 201905
  2. BISOPROLOL [Concomitant]
     Active Substance: BISOPROLOL
     Indication: PRODUCT USED FOR UNKNOWN INDICATION
     Dosage: 2.5 MG, QD
     Route: 065

REACTIONS (14)
  - Neuroborreliosis [Unknown]
  - Pain [Recovered/Resolved]
  - Monoparesis [Recovered/Resolved]
  - Fatigue [Unknown]
  - Pain in extremity [Unknown]
  - Allodynia [Unknown]
  - Paraesthesia [Unknown]
  - Asthenia [Unknown]
  - Hyperaesthesia [Unknown]
  - Hypoaesthesia [Unknown]
  - Neuralgic amyotrophy [Recovered/Resolved]
  - Sensory level abnormal [Recovered/Resolved]
  - Borrelia infection [Unknown]
  - Thermohyperaesthesia [Unknown]

NARRATIVE: CASE EVENT DATE: 20190427
